FAERS Safety Report 9937648 (Version 1)
Quarter: 2014Q1

REPORT INFORMATION
  Report Type: Spontaneous
  Country: US (occurrence: US)
  Receive Date: 20140303
  Receipt Date: 20140303
  Transmission Date: 20141002
  Serious: No
  Sender: FDA-Public Use
  Company Number: US-BIOGENIDEC-2014BI002694

PATIENT
  Age: 53 Year
  Sex: Female

DRUGS (4)
  1. TECFIDERA [Suspect]
     Indication: MULTIPLE SCLEROSIS
     Route: 048
     Dates: start: 20131016
  2. TEMAZEPAM [Concomitant]
  3. PROVIGIL [Concomitant]
  4. LEXAPRO [Concomitant]

REACTIONS (3)
  - Constipation [Unknown]
  - Weight decreased [Unknown]
  - Flushing [Not Recovered/Not Resolved]
